FAERS Safety Report 18359832 (Version 1)
Quarter: 2020Q4

REPORT INFORMATION
  Report Type: Spontaneous
  Country: IR (occurrence: IR)
  Receive Date: 20201008
  Receipt Date: 20201008
  Transmission Date: 20210114
  Serious: Yes (Other)
  Sender: FDA-Public Use
  Company Number: IR-LUPIN PHARMACEUTICALS INC.-2020-06925

PATIENT
  Age: 49 Year
  Sex: Male

DRUGS (1)
  1. CEFIXIME. [Suspect]
     Active Substance: CEFIXIME
     Indication: PHARYNGITIS BACTERIAL
     Dosage: 400 MILLIGRAM, BID, CAPSULE
     Route: 048
     Dates: start: 2019

REACTIONS (4)
  - Acute myopia [Recovered/Resolved]
  - Angle closure glaucoma [Recovered/Resolved]
  - Conjunctival oedema [Recovered/Resolved]
  - Cataract cortical [Recovered/Resolved]

NARRATIVE: CASE EVENT DATE: 2019
